FAERS Safety Report 23237266 (Version 3)
Quarter: 2024Q2

REPORT INFORMATION
  Report Type: Report from Study
  Country: US (occurrence: US)
  Receive Date: 20231128
  Receipt Date: 20240531
  Transmission Date: 20240716
  Serious: No
  Sender: FDA-Public Use
  Company Number: US-ACADIA PHARMACEUTICALS INC.-ACA-2023-TRF-005063

PATIENT
  Sex: Female

DRUGS (2)
  1. DAYBUE [Suspect]
     Active Substance: TROFINETIDE
     Dosage: UNK
     Route: 065
  2. DAYBUE [Suspect]
     Active Substance: TROFINETIDE
     Dosage: 5 MILLILITER
     Route: 065

REACTIONS (7)
  - Weight decreased [Unknown]
  - Refusal of treatment by patient [Unknown]
  - Drug ineffective [Unknown]
  - Diarrhoea [Unknown]
  - Vomiting [Unknown]
  - Vomiting [Unknown]
  - Diarrhoea [Unknown]
